FAERS Safety Report 19895513 (Version 2)
Quarter: 2021Q4

REPORT INFORMATION
  Report Type: Other
  Country: GB (occurrence: GB)
  Receive Date: 20210929
  Receipt Date: 20211009
  Transmission Date: 20220303
  Serious: Yes (Hospitalization)
  Sender: FDA-Public Use
  Company Number: GB-ROCHE-2919565

PATIENT
  Sex: Female

DRUGS (1)
  1. RISDIPLAM [Suspect]
     Active Substance: RISDIPLAM
     Indication: Spinal muscular atrophy
     Dosage: 0.75MG/ML DOSE: 5MG (6.6ML ONCE DAILY)
     Route: 048
     Dates: start: 20210512

REACTIONS (1)
  - Cholelithiasis [Unknown]
